FAERS Safety Report 5453656-9 (Version None)
Quarter: 2007Q3

REPORT INFORMATION
  Report Type: 
  Country: None (occurrence: None)
  Receive Date: 20070917
  Receipt Date: 20070910
  Transmission Date: 20080115
  Serious: Yes (Hospitalization)
  Sender: FDA-Public Use
  Company Number: PHBS2007NL14424

PATIENT
  Age: 84 Year
  Sex: Male

DRUGS (8)
  1. EXJADE [Suspect]
  2. NORVASK [Concomitant]
  3. ASCAL [Concomitant]
  4. PREDNISOLONE [Concomitant]
  5. PROMOCARD [Concomitant]
  6. PLAVIX [Concomitant]
  7. PANTOPRAZOLE SODIUM [Concomitant]
  8. BISOPROLOL [Concomitant]

REACTIONS (5)
  - BODY TEMPERATURE INCREASED [None]
  - CHILLS [None]
  - LEUKOPENIA [None]
  - PANCYTOPENIA [None]
  - THROMBOCYTOPENIA [None]
